FAERS Safety Report 21713631 (Version 2)
Quarter: 2023Q4

REPORT INFORMATION
  Report Type: Spontaneous
  Country: US (occurrence: US)
  Receive Date: 20221212
  Receipt Date: 20231208
  Transmission Date: 20240110
  Serious: No
  Sender: FDA-Public Use
  Company Number: US-AMERICAN REGENT INC-2022000434

PATIENT
  Sex: Male
  Weight: 119 kg

DRUGS (35)
  1. VENOFER [Suspect]
     Active Substance: IRON SUCROSE
     Indication: Iron deficiency anaemia
     Dosage: UNK UNKNOWN
     Route: 042
     Dates: start: 20210423, end: 20210423
  2. VENOFER [Suspect]
     Active Substance: IRON SUCROSE
     Dosage: UNK, SINGLE
     Route: 042
     Dates: start: 20210430, end: 20210430
  3. VENOFER [Suspect]
     Active Substance: IRON SUCROSE
     Dosage: UNK GRAM (2GRAMS TOTAL DOSE)
     Route: 042
     Dates: end: 201609
  4. VENOFER [Suspect]
     Active Substance: IRON SUCROSE
     Dosage: UNK UNKNOWN
     Route: 042
     Dates: start: 20210723, end: 20210723
  5. VENOFER [Suspect]
     Active Substance: IRON SUCROSE
     Dosage: UNK UNKNOWN
     Route: 042
     Dates: start: 20210730, end: 20210730
  6. VENOFER [Suspect]
     Active Substance: IRON SUCROSE
     Dosage: UNK UNKNOWN
     Route: 042
     Dates: start: 20210514, end: 20210514
  7. VENOFER [Suspect]
     Active Substance: IRON SUCROSE
     Dosage: UNK UNKNOWN
     Route: 042
     Dates: start: 20210521, end: 20210521
  8. VENOFER [Suspect]
     Active Substance: IRON SUCROSE
     Dosage: UNK UNKNOWN
     Route: 042
     Dates: start: 20210528, end: 20210528
  9. VENOFER [Suspect]
     Active Substance: IRON SUCROSE
     Dosage: UNK UNKNOWN
     Route: 042
     Dates: start: 20210604, end: 20210604
  10. VENOFER [Suspect]
     Active Substance: IRON SUCROSE
     Dosage: UNK UNKNOWN
     Route: 042
     Dates: start: 20210702, end: 20210702
  11. VENOFER [Suspect]
     Active Substance: IRON SUCROSE
     Dosage: UNK UNKNOWN
     Route: 042
     Dates: start: 20210709, end: 20210709
  12. VENOFER [Suspect]
     Active Substance: IRON SUCROSE
     Dosage: UNK UNKNOWN
     Route: 042
     Dates: start: 20210716, end: 20210716
  13. VENOFER [Suspect]
     Active Substance: IRON SUCROSE
     Dosage: UNK UNKNOWN
     Route: 042
     Dates: start: 20210806, end: 20210806
  14. VENOFER [Suspect]
     Active Substance: IRON SUCROSE
     Dosage: UNK UNKNOWN
     Route: 042
     Dates: start: 20210813, end: 20210813
  15. VENOFER [Suspect]
     Active Substance: IRON SUCROSE
     Dosage: UNK UNKNOWN
     Route: 042
     Dates: start: 20210820, end: 20210820
  16. VENOFER [Suspect]
     Active Substance: IRON SUCROSE
     Dosage: UNK UNKNOWN
     Route: 042
     Dates: start: 20210827, end: 20210827
  17. VENOFER [Suspect]
     Active Substance: IRON SUCROSE
     Dosage: UNK UNKNOWN
     Route: 042
     Dates: start: 20210903, end: 20210903
  18. VENOFER [Suspect]
     Active Substance: IRON SUCROSE
     Dosage: UNK UNKNOWN
     Route: 042
     Dates: start: 20210910, end: 20210910
  19. VENOFER [Suspect]
     Active Substance: IRON SUCROSE
     Dosage: UNK UNKNOWN
     Route: 042
     Dates: start: 20210924, end: 20210924
  20. VENOFER [Suspect]
     Active Substance: IRON SUCROSE
     Dosage: UNK UNKNOWN
     Route: 042
     Dates: start: 20211001, end: 20211001
  21. VENOFER [Suspect]
     Active Substance: IRON SUCROSE
     Dosage: UNK UNKNOWN
     Route: 042
     Dates: start: 20211022, end: 20211022
  22. VENOFER [Suspect]
     Active Substance: IRON SUCROSE
     Dosage: UNK UNKNOWN
     Route: 042
     Dates: start: 20211029, end: 20211029
  23. VENOFER [Suspect]
     Active Substance: IRON SUCROSE
     Dosage: UNK UNKNOWN
     Route: 042
     Dates: start: 20211105, end: 20211105
  24. VENOFER [Suspect]
     Active Substance: IRON SUCROSE
     Dosage: UNK UNKNOWN
     Route: 042
     Dates: start: 20211112, end: 20211112
  25. VENOFER [Suspect]
     Active Substance: IRON SUCROSE
     Dosage: UNK UNKNOWN (TOTAL OF 5.4 G RECEIVED)
     Route: 042
     Dates: start: 20211119, end: 20211119
  26. ERGOCALCIFEROL [Concomitant]
     Active Substance: ERGOCALCIFEROL
     Indication: Vitamin D deficiency
     Dosage: TAKE 1 TABLET (50 MICROGRAM TOTAL) DAILY
     Route: 048
  27. INSULIN DETEMIR [Concomitant]
     Active Substance: INSULIN DETEMIR
     Indication: Product used for unknown indication
     Dosage: INJECT 0.28 MILLILITER (28 UNITS TOTAL) NIGHTLY
     Route: 058
  28. INSULIN LISPRO [Concomitant]
     Active Substance: INSULIN LISPRO
     Indication: Product used for unknown indication
     Dosage: INJECT 0.06 MILLILITER (12 UNITS TOTAL) 3 TIMES A DAY
     Route: 058
  29. LIDOCAINE [Concomitant]
     Active Substance: LIDOCAINE
     Indication: Product used for unknown indication
     Dosage: APPLY 1 APPLICATION DAILY
     Route: 061
  30. LOSARTAN [Concomitant]
     Active Substance: LOSARTAN
     Indication: Product used for unknown indication
     Dosage: TAKE 1 TABLET (25 MILLIGRAM TOTAL) DAILY
     Route: 048
  31. MELOXICAM [Concomitant]
     Active Substance: MELOXICAM
     Indication: Product used for unknown indication
     Dosage: TAKE 1 TABLET (7.5 MILLIGRAM TOTAL) 2 TIMES A DAY
     Route: 048
  32. METFORMIN [Concomitant]
     Active Substance: METFORMIN HYDROCHLORIDE
     Indication: Product used for unknown indication
     Dosage: TAKE 1 TABLET (500 MILLIGRAM TOTAL) 2 TIMES A DAY WITH MEALS
     Route: 048
  33. PANTOPRAZOLE [Concomitant]
     Active Substance: PANTOPRAZOLE
     Indication: Product used for unknown indication
     Dosage: TAKE 1 TABLET (40 MILLIGRAM TOTAL) DAILY
     Route: 048
  34. TADALAFIL [Concomitant]
     Active Substance: TADALAFIL
     Indication: Product used for unknown indication
     Dosage: TAKE 1 TABLET DAILY AS NEEDED
     Route: 048
  35. ACETAMINOPHEN [Concomitant]
     Active Substance: ACETAMINOPHEN
     Indication: Product used for unknown indication
     Dosage: 650 MILLIGRAM Q 6 HR
     Route: 048

REACTIONS (4)
  - Vein disorder [Recovered/Resolved]
  - Feeling hot [Not Recovered/Not Resolved]
  - Peripheral swelling [Recovered/Resolved]
  - Inappropriate schedule of product administration [Unknown]

NARRATIVE: CASE EVENT DATE: 20200101
